FAERS Safety Report 12099689 (Version 1)
Quarter: 2016Q1

REPORT INFORMATION
  Report Type: Spontaneous
  Country: US (occurrence: None)
  Receive Date: 20160219
  Receipt Date: 20160219
  Transmission Date: 20160526
  Serious: Yes (Life-Threatening, Hospitalization, Disabling, Other)
  Sender: FDA-Public Use
  Company Number: None

PATIENT
  Age: 60 Year
  Sex: Male
  Weight: 74.84 kg

DRUGS (5)
  1. MULTIVITAMIN [Concomitant]
     Active Substance: VITAMINS
  2. SLEEPING PILLS [Concomitant]
     Active Substance: UNSPECIFIED INGREDIENT
  3. CALCIUM [Concomitant]
     Active Substance: CALCIUM
  4. CIPROFLOXACIN. [Suspect]
     Active Substance: CIPROFLOXACIN
     Indication: STAPHYLOCOCCAL INFECTION
     Dosage: 1 @12 HOURS
     Route: 048
     Dates: start: 20060626, end: 20060902
  5. EYE DROPS [Concomitant]
     Active Substance: TETRAHYDROZOLINE HYDROCHLORIDE

REACTIONS (2)
  - Muscle atrophy [None]
  - Osteomyelitis [None]

NARRATIVE: CASE EVENT DATE: 20060626
